FAERS Safety Report 11508802 (Version 2)
Quarter: 2015Q3

REPORT INFORMATION
  Report Type: Spontaneous
  Country: US (occurrence: US)
  Receive Date: 20150915
  Receipt Date: 20150917
  Transmission Date: 20151125
  Serious: Yes (Other)
  Sender: FDA-Public Use
  Company Number: US-PFIZER INC-2015304009

PATIENT
  Age: 55 Year
  Sex: Male
  Weight: 109 kg

DRUGS (4)
  1. LEXAPRO [Concomitant]
     Active Substance: ESCITALOPRAM OXALATE
     Dosage: UNK
  2. VIAGRA [Suspect]
     Active Substance: SILDENAFIL CITRATE
     Dosage: 50 MG (A HALF A 100 MG) ONCE
     Dates: start: 201508
  3. METFORMIN [Concomitant]
     Active Substance: METFORMIN HYDROCHLORIDE
     Dosage: UNK
  4. GLYBURIDE. [Concomitant]
     Active Substance: GLYBURIDE
     Dosage: UNK

REACTIONS (10)
  - Asthenia [Unknown]
  - Anorgasmia [Unknown]
  - Libido decreased [Recovered/Resolved]
  - Vein disorder [Unknown]
  - Genital hypoaesthesia [Unknown]
  - Drug ineffective [Unknown]
  - Penis disorder [Unknown]
  - Hypoaesthesia [Unknown]
  - Orgasmic sensation decreased [Unknown]
  - Erectile dysfunction [Unknown]

NARRATIVE: CASE EVENT DATE: 201508
